FAERS Safety Report 8910198 (Version 7)
Quarter: 2017Q3

REPORT INFORMATION
  Report Type: Spontaneous
  Country: US (occurrence: US)
  Receive Date: 20121115
  Receipt Date: 20170913
  Transmission Date: 20171128
  Serious: Yes (Death, Hospitalization, Disabling, Other)
  Sender: FDA-Public Use
  Company Number: US-009507513-1211USA005789

PATIENT
  Sex: Female
  Weight: 57.6 kg

DRUGS (2)
  1. FOSAMAX [Suspect]
     Active Substance: ALENDRONATE SODIUM
     Indication: OSTEOPOROSIS
     Dosage: 70 MG, QW
     Route: 048
     Dates: start: 2002, end: 200801
  2. ALENDRONATE SODIUM. [Suspect]
     Active Substance: ALENDRONATE SODIUM
     Dosage: 70 MG, UNK
     Route: 048
     Dates: start: 200802, end: 200912

REACTIONS (25)
  - Anaemia [Not Recovered/Not Resolved]
  - Gastrooesophageal reflux disease [Unknown]
  - Anaemia postoperative [Unknown]
  - Suicidal ideation [Recovered/Resolved]
  - Hip fracture [Unknown]
  - Hip arthroplasty [Unknown]
  - Haemoglobin decreased [Unknown]
  - Rotator cuff syndrome [Unknown]
  - Gout [Unknown]
  - Diarrhoea [Not Recovered/Not Resolved]
  - Femoral neck fracture [Unknown]
  - Osteoporosis [Unknown]
  - Osteoarthritis [Unknown]
  - Depression [Recovered/Resolved]
  - Transferrin decreased [Unknown]
  - Wrist fracture [Unknown]
  - Cardiac failure congestive [Fatal]
  - Macular degeneration [Unknown]
  - Mitral valve incompetence [Unknown]
  - Renal failure [Fatal]
  - Coronary artery disease [Fatal]
  - Femur fracture [Not Recovered/Not Resolved]
  - Internal fixation of fracture [Not Recovered/Not Resolved]
  - Spinal column stenosis [Unknown]
  - Cataract [Unknown]

NARRATIVE: CASE EVENT DATE: 20071201
